FAERS Safety Report 5927882-6 (Version None)
Quarter: 2008Q4

REPORT INFORMATION
  Report Type: 
  Country: None (occurrence: None)
  Receive Date: 20081022
  Receipt Date: 20081022
  Transmission Date: 20090506
  Serious: Yes (Life-Threatening, Other)
  Sender: FDA-Public Use
  Company Number: None

PATIENT
  Age: 60 Year
  Sex: Female
  Weight: 79.3795 kg

DRUGS (2)
  1. CYMBALTA [Suspect]
     Indication: ANALGESIA
     Dosage: 30MG TITRATE TO 60 MG DAILY PO
     Route: 048
     Dates: start: 20060901, end: 20070101
  2. CYMBALTA [Suspect]
     Indication: FIBROMYALGIA
     Dosage: 30MG TITRATE TO 60 MG DAILY PO
     Route: 048
     Dates: start: 20060901, end: 20070101

REACTIONS (5)
  - ANHEDONIA [None]
  - IMPAIRED WORK ABILITY [None]
  - LOSS OF EMPLOYMENT [None]
  - MENTAL DISORDER [None]
  - SUICIDAL IDEATION [None]
